FAERS Safety Report 4856714-2 (Version None)
Quarter: 2005Q4

REPORT INFORMATION
  Report Type: 
  Country: None (occurrence: None)
  Receive Date: 20051215
  Receipt Date: 20051202
  Transmission Date: 20060501
  Serious: Yes (Hospitalization)
  Sender: FDA-Public Use
  Company Number: 2005-133246-NL

PATIENT
  Age: 30 Year
  Sex: Female

DRUGS (2)
  1. NUVARING [Suspect]
     Indication: CONTRACEPTION
     Dosage: VAGINAL
     Route: 067
     Dates: start: 20050301, end: 20050923
  2. LEVOTHYROXINE SODIUM [Concomitant]

REACTIONS (2)
  - HEADACHE [None]
  - LOSS OF CONSCIOUSNESS [None]
